FAERS Safety Report 5888685-4 (Version None)
Quarter: 2008Q3

REPORT INFORMATION
  Report Type: 
  Country: None (occurrence: None)
  Receive Date: 20080917
  Receipt Date: 20080903
  Transmission Date: 20090109
  Serious: No
  Sender: FDA-Public Use
  Company Number: 003661

PATIENT
  Age: 76 Year
  Sex: Male
  Weight: 53 kg

DRUGS (2)
  1. PLETAL [Suspect]
     Indication: ARTERIOSCLEROSIS OBLITERANS
     Dosage: 100 MG, BID ORAL
     Route: 048
     Dates: start: 20080620, end: 20080801
  2. ANPLAG (SARPOGRELATE HYDROCHLORIDE) TABLET [Suspect]
     Dosage: 100 MG, TID ORAL
     Route: 048
     Dates: start: 20080620, end: 20080801

REACTIONS (6)
  - ALANINE AMINOTRANSFERASE INCREASED [None]
  - ASPARTATE AMINOTRANSFERASE INCREASED [None]
  - CELLULITIS [None]
  - LIVER DISORDER [None]
  - POST PROCEDURAL COMPLICATION [None]
  - RASH [None]
